FAERS Safety Report 10174457 (Version 1)
Quarter: 2014Q2

REPORT INFORMATION
  Report Type: Spontaneous
  Country: US (occurrence: US)
  Receive Date: 20140515
  Receipt Date: 20140515
  Transmission Date: 20141212
  Serious: No
  Sender: FDA-Public Use
  Company Number: US-BAYER-2014-071176

PATIENT
  Age: 92 Year
  Sex: Female
  Weight: 49.89 kg

DRUGS (6)
  1. ALEVE TABLET [Suspect]
     Indication: ARTHRITIS
     Dosage: 1 DF, BID
     Route: 048
  2. LIBRIUM [Concomitant]
     Dosage: UNK
  3. VITAMIN E [Concomitant]
     Dosage: UNK
  4. ONE A DAY WOMEN^S [Concomitant]
     Dosage: UNK
  5. VITAMIN D3 [Concomitant]
     Dosage: UNK
  6. IRON [Concomitant]
     Dosage: UNK

REACTIONS (1)
  - Incorrect drug administration duration [None]
